FAERS Safety Report 4776294-X (Version None)
Quarter: 2005Q3

REPORT INFORMATION
  Report Type: 
  Country: None (occurrence: None)
  Receive Date: 20050921
  Receipt Date: 20050916
  Transmission Date: 20060218
  Serious: Yes (Life-Threatening, Other)
  Sender: FDA-Public Use
  Company Number: FRWYE985316SEP05

PATIENT
  Age: 94 Year
  Sex: Female

DRUGS (4)
  1. EFFEXOR [Suspect]
     Indication: DEPRESSION
     Dosage: 50 MG 1X PER 1 DAY ORAL
     Route: 048
     Dates: start: 20040501
  2. ASPEGIC 1000 [Suspect]
     Dosage: 100 MG 1X PER 1 DAY ORAL
     Route: 048
     Dates: start: 20040501, end: 20050701
  3. COUMADIN [Suspect]
     Dosage: 2 MG 1X PER 1 DAY ORAL
     Route: 048
     Dates: start: 20050701, end: 20050701
  4. INNOHEP [Suspect]
     Dosage: 14.000 IU SC
     Route: 058
     Dates: start: 20050601, end: 20050701

REACTIONS (3)
  - ANAEMIA [None]
  - HAEMATOMA [None]
  - RECTAL HAEMORRHAGE [None]
